FAERS Safety Report 8351444 (Version 5)
Quarter: 2012Q4

REPORT INFORMATION
  Report Type: 
  Country: US (occurrence: US)
  Receive Date: 20120124
  Receipt Date: 20121016
  Transmission Date: 20130627
  Serious: Yes (Death, Hospitalization, Other)
  Sender: FDA-Public Use
  Company Number: PHEH2012US001901

PATIENT
  Age: 58 Year
  Sex: Female

DRUGS (12)
  1. GILENYA [Suspect]
     Indication: RELAPSING-REMITTING MULTIPLE SCLEROSIS
     Dosage: 0.5 mg, QD
     Route: 048
     Dates: start: 201102
  2. BACLOFEN [Concomitant]
     Dosage: 10 mg, UNK
  3. JEVITY [Concomitant]
     Dosage: 60CC/HR, daily
  4. MACROBID [Concomitant]
     Dosage: 100 mg, daily
  5. NORVASC [Concomitant]
     Dosage: 10 mg, BID
  6. PROPRANOLOL HYDROCHLORIDE [Concomitant]
     Dosage: 20 mg, BID
  7. PROVIGIL [Concomitant]
     Dosage: 100 mg, BID
  8. SENNA [Concomitant]
     Dosage: 8.6-50 mg, three times daily
  9. ZANTAC [Concomitant]
     Dosage: 150 mg, BID
  10. BACID [Concomitant]
     Dosage: UNK UKN, BID
  11. KEPPRA [Concomitant]
     Dosage: 1000 mg, BID
  12. DILANTIN [Concomitant]
     Dosage: 125 mg/ 5 ml
     Route: 048

REACTIONS (34)
  - Fatigue [Unknown]
  - Dysphagia [Unknown]
  - Urinary tract infection [Unknown]
  - Weight decreased [Unknown]
  - Nasal congestion [Unknown]
  - Confusional state [Unknown]
  - Blood pressure increased [Unknown]
  - Nausea [Unknown]
  - Oedema [Unknown]
  - Dry mouth [Unknown]
  - Decreased appetite [Unknown]
  - Dehydration [Unknown]
  - Lethargy [Unknown]
  - Pyrexia [Unknown]
  - Disorientation [Unknown]
  - Palpitations [Unknown]
  - Cough [Unknown]
  - Dyspnoea [Unknown]
  - Death [Fatal]
  - Restlessness [Unknown]
  - Pain [Unknown]
  - Pneumonia aspiration [Unknown]
  - Muscle contracture [Unknown]
  - Paralysis [Unknown]
  - Coma [Unknown]
  - Skin disorder [Unknown]
  - Convulsion [Unknown]
  - Decubitus ulcer [Unknown]
  - Urinary incontinence [Unknown]
  - Tachycardia [Unknown]
  - Cyanosis [Unknown]
  - Hyperhidrosis [Unknown]
  - Multiple sclerosis relapse [Unknown]
  - Aphasia [Unknown]
